FAERS Safety Report 7709933 (Version 8)
Quarter: 2016Q2

REPORT INFORMATION
  Report Type: Spontaneous
  Country: US (occurrence: US)
  Receive Date: 20101214
  Receipt Date: 20160428
  Transmission Date: 20160815
  Serious: Yes (Disabling, Other)
  Sender: FDA-Public Use
  Company Number: US-ASTRAZENECA-2010SE47805

PATIENT
  Age: 69 Year
  Sex: Female

DRUGS (21)
  1. TENORMIN [Suspect]
     Active Substance: ATENOLOL
     Indication: PRODUCT USED FOR UNKNOWN INDICATION
     Route: 065
  2. CRESTOR [Suspect]
     Active Substance: ROSUVASTATIN CALCIUM
     Route: 048
  3. SENIOR EYE VISION WITH LUTEIN AND BILBERRY [Concomitant]
  4. VITAMIN E [Concomitant]
     Active Substance: .ALPHA.-TOCOPHEROL
  5. LEVOTHYROXINE. [Concomitant]
     Active Substance: LEVOTHYROXINE
  6. ZETIA [Concomitant]
     Active Substance: EZETIMIBE
  7. LISINOPRIL. [Concomitant]
     Active Substance: LISINOPRIL
  8. ASPIRIN. [Concomitant]
     Active Substance: ASPIRIN
  9. LISINOPRIL. [Concomitant]
     Active Substance: LISINOPRIL
  10. HYDROCODONE [Concomitant]
     Active Substance: HYDROCODONE
     Dosage: 5/500 AS REQUIRED
  11. OXYBUTYNIN [Concomitant]
     Active Substance: OXYBUTYNIN
  12. GLUCOSAMINE CHONDROITIN MSM [Concomitant]
  13. LISINOPRIL. [Concomitant]
     Active Substance: LISINOPRIL
  14. UROCIT-K [Concomitant]
     Active Substance: POTASSIUM CITRATE
  15. VITAMIN D3 [Concomitant]
     Active Substance: CHOLECALCIFEROL
  16. LEVOTHYROXINE. [Concomitant]
     Active Substance: LEVOTHYROXINE
  17. GLIPIZIDE. [Concomitant]
     Active Substance: GLIPIZIDE
  18. LEVOTHYROXINE. [Concomitant]
     Active Substance: LEVOTHYROXINE
  19. CRESTOR [Suspect]
     Active Substance: ROSUVASTATIN CALCIUM
     Route: 048
  20. OMEPRAZOLE. [Suspect]
     Active Substance: OMEPRAZOLE
     Route: 048
     Dates: start: 201404
  21. VITAMIN B12 [Concomitant]
     Active Substance: CYANOCOBALAMIN

REACTIONS (10)
  - Renal disorder [Unknown]
  - Headache [Unknown]
  - Visual field defect [Unknown]
  - Road traffic accident [Unknown]
  - Feeling abnormal [Unknown]
  - Stress [Unknown]
  - Blindness [Unknown]
  - Drug hypersensitivity [Not Recovered/Not Resolved]
  - Drug ineffective [Unknown]
  - Blood cholesterol increased [Unknown]

NARRATIVE: CASE EVENT DATE: 1975
